FAERS Safety Report 16712968 (Version 1)
Quarter: 2019Q3

REPORT INFORMATION
  Report Type: Spontaneous
  Country: GB (occurrence: GB)
  Receive Date: 20190817
  Receipt Date: 20190817
  Transmission Date: 20191004
  Serious: Yes (Other)
  Sender: FDA-Public Use
  Company Number: GB-AUROBINDO-AUR-APL-2019-053705

PATIENT

DRUGS (10)
  1. ASPIRIN. [Suspect]
     Active Substance: ASPIRIN
     Indication: CARDIOVASCULAR DISORDER
     Dosage: 75 MILLIGRAM, ONCE A DAY
     Route: 016
  2. RISEDRONATE [Suspect]
     Active Substance: RISEDRONATE SODIUM
     Indication: OSTEOPOROSIS
     Dosage: 35 MILLIGRAM, EVERY WEEK
     Route: 065
  3. HIDROXOCOBALAMINA [Suspect]
     Active Substance: HYDROXOCOBALAMIN
     Dosage: TOP UP DOSE
     Route: 030
     Dates: start: 201904
  4. OMEPRAZOLE. [Suspect]
     Active Substance: OMEPRAZOLE
     Dosage: 20 MILLIGRAM, ONCE A DAY
     Route: 065
     Dates: start: 201802
  5. SIMVASTATIN. [Suspect]
     Active Substance: SIMVASTATIN
     Indication: CARDIOVASCULAR DISORDER
     Dosage: 40 MILLIGRAM, ONCE A DAY
     Route: 065
  6. ROPINIROLE. [Suspect]
     Active Substance: ROPINIROLE
     Indication: PERIODIC LIMB MOVEMENT DISORDER
     Dosage: 6 MILLIGRAM, ONCE A DAY
     Route: 065
  7. ADCAL [CARBAZOCHROME] [Suspect]
     Active Substance: CARBAZOCHROME
     Indication: OSTEOPOROSIS
     Dosage: 1 DF, UNK
     Route: 016
  8. HIDROXOCOBALAMINA [Suspect]
     Active Substance: HYDROXOCOBALAMIN
     Indication: PRODUCT USED FOR UNKNOWN INDICATION
     Dosage: STANDARD LOADING DOSE
     Route: 030
     Dates: start: 201901
  9. CALCIUM FOLINATE [Suspect]
     Active Substance: LEUCOVORIN CALCIUM
     Indication: CARDIOVASCULAR DISORDER
     Dosage: 800 MILLIGRAM, ONCE A DAY
     Route: 016
  10. OMEPRAZOLE. [Suspect]
     Active Substance: OMEPRAZOLE
     Indication: GASTROOESOPHAGEAL REFLUX DISEASE
     Dosage: 1 UNK, ONCE A DAY
     Route: 016
     Dates: start: 1992, end: 201802

REACTIONS (14)
  - Asthenia [Unknown]
  - Somnolence [Unknown]
  - Periodic limb movement disorder [Unknown]
  - Treatment failure [Unknown]
  - Exercise tolerance decreased [Unknown]
  - Angina pectoris [Unknown]
  - Hand deformity [Unknown]
  - Cardiovascular disorder [Unknown]
  - Vitamin B12 deficiency [Unknown]
  - Peripheral sensorimotor neuropathy [Unknown]
  - Balance disorder [Unknown]
  - Fall [Unknown]
  - Sensory loss [Unknown]
  - Hypoaesthesia [Unknown]

NARRATIVE: CASE EVENT DATE: 1992
